APPROVED DRUG PRODUCT: EMTRICITABINE AND TENOFOVIR DISOPROXIL FUMARATE
Active Ingredient: EMTRICITABINE; TENOFOVIR DISOPROXIL FUMARATE
Strength: 100MG;150MG
Dosage Form/Route: TABLET;ORAL
Application: A209721 | Product #001 | TE Code: AB
Applicant: AMNEAL PHARMACEUTICALS CO GMBH
Approved: Aug 22, 2018 | RLD: No | RS: No | Type: RX